FAERS Safety Report 6767240-8 (Version None)
Quarter: 2010Q2

REPORT INFORMATION
  Report Type: 
  Country: None (occurrence: None)
  Receive Date: 20100614
  Receipt Date: 20100611
  Transmission Date: 20101027
  Serious: Yes (Death)
  Sender: FDA-Public Use
  Company Number: GB-JNJFOC-20091103373

PATIENT
  Sex: Female
  Weight: 66.3 kg

DRUGS (9)
  1. DURAGESIC-100 [Suspect]
     Indication: PAIN
     Route: 062
  2. DURAGESIC-100 [Suspect]
     Route: 062
  3. DURAGESIC-100 [Suspect]
     Route: 062
  4. AMITRIPTYLINE [Suspect]
     Indication: DEPRESSION
     Route: 065
  5. GABAPENTIN [Concomitant]
     Indication: DRUG USE FOR UNKNOWN INDICATION
     Route: 065
  6. MELOXICAM [Concomitant]
     Indication: PAIN
     Route: 065
  7. CANDESARTAN [Concomitant]
     Indication: DRUG USE FOR UNKNOWN INDICATION
     Route: 065
  8. CETIRIZINE HCL [Concomitant]
     Indication: DRUG USE FOR UNKNOWN INDICATION
     Route: 065
  9. DIAZEPAM [Concomitant]
     Route: 065

REACTIONS (2)
  - DRUG TOXICITY [None]
  - MYOCARDIAL ISCHAEMIA [None]
